FAERS Safety Report 7895700-5 (Version None)
Quarter: 2011Q4

REPORT INFORMATION
  Report Type: 
  Country: None (occurrence: None)
  Receive Date: 20111027
  Receipt Date: 20110328
  Transmission Date: 20120403
  Serious: Yes (Hospitalization)
  Sender: FDA-Public Use
  Company Number: WAES 1103USA03698

PATIENT
  Sex: Female

DRUGS (1)
  1. MEVACOR [Suspect]
     Dosage: PO
     Route: 048

REACTIONS (1)
  - HYPERSENSITIVITY [None]
